FAERS Safety Report 17224473 (Version 1)
Quarter: 2019Q4

REPORT INFORMATION
  Report Type: Spontaneous
  Country: US (occurrence: US)
  Receive Date: 20191209
  Receipt Date: 20191209
  Transmission Date: 20200122
  Serious: Yes (Hospitalization)
  Sender: FDA-Public Use
  Company Number: None

PATIENT
  Age: 80 Year
  Sex: Male
  Weight: 109 kg

DRUGS (1)
  1. ACETAMINOPHEN/OXYCODONE (OXYCODONE HCL 5MG/ACETAMINOPHEN 325MG TAB) [Suspect]
     Active Substance: ACETAMINOPHEN\OXYCODONE HYDROCHLORIDE
     Dosage: ?          OTHER DOSE:5/325MG;OTHER FREQUENCY:PRN;?
     Route: 048
     Dates: start: 201910, end: 20191104

REACTIONS (4)
  - Hypotension [None]
  - Respiratory depression [None]
  - Sedation [None]
  - Unresponsive to stimuli [None]

NARRATIVE: CASE EVENT DATE: 20191104
